FAERS Safety Report 10176290 (Version 1)
Quarter: 2014Q2

REPORT INFORMATION
  Report Type: Spontaneous
  Country: US (occurrence: US)
  Receive Date: 20140516
  Receipt Date: 20140516
  Transmission Date: 20141212
  Serious: No
  Sender: FDA-Public Use
  Company Number: US-PFIZER INC-2014134860

PATIENT
  Age: 77 Year
  Sex: Female
  Weight: 58.96 kg

DRUGS (2)
  1. CELEBREX [Suspect]
     Indication: ARTHRITIS
     Dosage: 200 MG, DAILY
     Dates: end: 201405
  2. CELEBREX [Suspect]
     Dosage: 200 MG, DAILY
     Dates: start: 201405, end: 201405

REACTIONS (2)
  - Tinnitus [Unknown]
  - Ear discomfort [Unknown]
